FAERS Safety Report 10142856 (Version 1)
Quarter: 2014Q2

REPORT INFORMATION
  Report Type: Spontaneous
  Country: US (occurrence: US)
  Receive Date: 20140430
  Receipt Date: 20140430
  Transmission Date: 20141212
  Serious: Yes (Other)
  Sender: FDA-Public Use
  Company Number: US-JNJFOC-20140416800

PATIENT
  Sex: Female
  Weight: 74.84 kg

DRUGS (4)
  1. ELMIRON [Suspect]
     Indication: CYSTITIS INTERSTITIAL
     Dosage: AUG OR SEPT
     Route: 048
     Dates: start: 20120501
  2. ELMIRON [Suspect]
     Indication: CYSTITIS INTERSTITIAL
     Route: 048
     Dates: start: 2012
  3. PHENAZOPYRIDINE [Concomitant]
     Indication: URINARY TRACT DISORDER
     Route: 048
     Dates: start: 2013
  4. AMITRIPTYLINE [Concomitant]
     Indication: NEURALGIA
     Route: 048
     Dates: start: 2013

REACTIONS (5)
  - Neoplasm [Recovered/Resolved]
  - Urinary incontinence [Recovered/Resolved]
  - Weight increased [Not Recovered/Not Resolved]
  - Underdose [Unknown]
  - Drug dose omission [Unknown]
